FAERS Safety Report 8586533-5 (Version None)
Quarter: 2012Q3

REPORT INFORMATION
  Report Type: 
  Country: None (occurrence: None)
  Receive Date: 20120810
  Receipt Date: 20120807
  Transmission Date: 20120928
  Serious: Yes (Disabling)
  Sender: FDA-Public Use
  Company Number: US-009507513-1109USA02456

PATIENT

DRUGS (1)
  1. PROPECIA [Suspect]
     Indication: ANDROGENETIC ALOPECIA
     Dosage: 1 MG, QD
     Route: 048
     Dates: start: 20020815, end: 20110501

REACTIONS (20)
  - SEMEN VOLUME DECREASED [None]
  - LIBIDO DECREASED [None]
  - EPIDIDYMAL DISORDER [None]
  - DANDRUFF [None]
  - PREMATURE EJACULATION [None]
  - MUSCULOSKELETAL STIFFNESS [None]
  - INJURY [None]
  - ERECTILE DYSFUNCTION [None]
  - EPIDIDYMITIS [None]
  - HYDROCELE [None]
  - URETHRAL STENOSIS [None]
  - TESTICULAR PAIN [None]
  - EMOTIONAL DISTRESS [None]
  - ALOPECIA [None]
  - ANXIETY [None]
  - SEXUAL DYSFUNCTION [None]
  - DEPRESSION [None]
  - SEBORRHOEIC DERMATITIS [None]
  - PEMPHIGUS [None]
  - URETHRITIS [None]
